FAERS Safety Report 8378214 (Version 2)
Quarter: 2013Q1

REPORT INFORMATION
  Report Type: Report from Study
  Country: IT (occurrence: IT)
  Receive Date: 20120131
  Receipt Date: 20130228
  Transmission Date: 20140127
  Serious: Yes (Death, Hospitalization)
  Sender: FDA-Public Use
  Company Number: IT-JNJFOC-20120112648

PATIENT
  Age: 78 Year
  Sex: Male
  Weight: 80 kg

DRUGS (6)
  1. ABIRATERONE ACETATE [Suspect]
     Route: 048
  2. ABIRATERONE ACETATE [Suspect]
     Indication: PROSTATE CANCER METASTATIC
     Route: 048
     Dates: start: 20110618, end: 20120106
  3. DELTACORTENE [Suspect]
     Indication: PROSTATE CANCER METASTATIC
     Route: 048
     Dates: start: 20090203, end: 201201
  4. MATRIFEN [Concomitant]
     Indication: BONE PAIN
     Route: 065
     Dates: start: 201201, end: 20120109
  5. DIBASE [Concomitant]
     Indication: METASTASES TO BONE
     Route: 048
     Dates: start: 201201, end: 201201
  6. ANTRA [Concomitant]
     Indication: GASTROINTESTINAL DISORDER THERAPY
     Route: 048
     Dates: start: 201201, end: 20120109

REACTIONS (7)
  - Hyponatraemia [Fatal]
  - Sepsis [Fatal]
  - Respiratory failure [Fatal]
  - Somnolence [Fatal]
  - Hypotension [Fatal]
  - Tachycardia [Fatal]
  - Abdominal pain [Fatal]
